FAERS Safety Report 24711275 (Version 1)
Quarter: 2024Q4

REPORT INFORMATION
  Report Type: Spontaneous
  Country: CN (occurrence: CN)
  Receive Date: 20241209
  Receipt Date: 20241209
  Transmission Date: 20250115
  Serious: Yes (Life-Threatening, Hospitalization)
  Sender: PFIZER
  Company Number: CN-PFIZER INC-PV202400157878

PATIENT
  Age: 69 Year
  Sex: Female
  Weight: 68 kg

DRUGS (2)
  1. PACLITAXEL [Suspect]
     Active Substance: PACLITAXEL
     Indication: Endometrial adenocarcinoma
     Dosage: 300 MG, 1X/DAY
     Route: 041
     Dates: start: 20200926, end: 20200926
  2. SODIUM CHLORIDE [Concomitant]
     Active Substance: SODIUM CHLORIDE
     Indication: Vehicle solution use
     Dosage: 500 ML, 1X/DAY
     Route: 041
     Dates: start: 20200926, end: 20200926

REACTIONS (8)
  - Chest discomfort [Recovering/Resolving]
  - Tachypnoea [Recovering/Resolving]
  - Flushing [Recovering/Resolving]
  - Dizziness [Recovering/Resolving]
  - Dry mouth [Recovering/Resolving]
  - Blood pressure increased [Recovering/Resolving]
  - Heart rate increased [Recovering/Resolving]
  - Off label use [Unknown]

NARRATIVE: CASE EVENT DATE: 20200926
